FAERS Safety Report 6149870-X (Version None)
Quarter: 2009Q2

REPORT INFORMATION
  Report Type: 
  Country: None (occurrence: None)
  Receive Date: 20090409
  Receipt Date: 20090331
  Transmission Date: 20091009
  Serious: Yes (Other)
  Sender: FDA-Public Use
  Company Number: US-PFIZER INC-2009193686

PATIENT
  Sex: Female
  Weight: 136 kg

DRUGS (6)
  1. PROVERA [Suspect]
     Indication: HORMONE REPLACEMENT THERAPY
     Dosage: 2.5 MG, UNK
     Dates: start: 19950101, end: 19951201
  2. PREMPRO [Suspect]
     Indication: HORMONE REPLACEMENT THERAPY
     Dosage: 0.625/2.5MG
     Dates: start: 19951201, end: 19980901
  3. PREMARIN [Suspect]
     Dosage: 0.625 MG, UNK
     Dates: start: 19951101, end: 19951201
  4. MEDROXYPROGESTERONE [Suspect]
     Indication: HORMONE REPLACEMENT THERAPY
  5. ESTROGENS [Suspect]
     Indication: HORMONE REPLACEMENT THERAPY
  6. MAXZIDE [Concomitant]
     Indication: OEDEMA
     Dosage: UNK
     Dates: start: 19930601

REACTIONS (1)
  - BREAST CANCER FEMALE [None]
